FAERS Safety Report 7514819-1 (Version None)
Quarter: 2011Q2

REPORT INFORMATION
  Report Type: 
  Country: None (occurrence: None)
  Receive Date: 20110601
  Receipt Date: 20110524
  Transmission Date: 20111010
  Serious: Yes (Life-Threatening, Disabling)
  Sender: FDA-Public Use
  Company Number: JP-JNJFOC-20110407588

PATIENT
  Sex: Female

DRUGS (2)
  1. LEVOFLOXACIN [Suspect]
     Indication: PYELOCYSTITIS
     Route: 048
     Dates: start: 20110409
  2. MUCOSTA [Concomitant]
     Route: 065

REACTIONS (3)
  - VISUAL FIELD DEFECT [None]
  - ANAPHYLACTIC REACTION [None]
  - NASAL CONGESTION [None]
